FAERS Safety Report 6416300-X (Version None)
Quarter: 2009Q4

REPORT INFORMATION
  Report Type: 
  Country: None (occurrence: None)
  Receive Date: 20091022
  Receipt Date: 20091019
  Transmission Date: 20100525
  Serious: Yes (Hospitalization)
  Sender: FDA-Public Use
  Company Number: 2009SP020476

PATIENT
  Age: 63 Year
  Sex: Male

DRUGS (6)
  1. PEG-INTRON [Suspect]
     Indication: HEPATITIS C
     Dosage: 120 MCG, QW; SC
     Route: 058
     Dates: start: 20090330, end: 20090803
  2. RIBAVIRIN [Suspect]
     Indication: HEPATITIS C
     Dosage: 1200 MG, QD; PO
     Route: 048
     Dates: start: 20090330, end: 20090805
  3. ELTROMBOPAG              (ELTROMBOPAG) [Suspect]
     Indication: THROMBOCYTOPENIA
     Dosage: 25 MG, QD, PO, 50 MG, QD, PO
     Route: 048
     Dates: start: 20090223, end: 20090309
  4. ELTROMBOPAG              (ELTROMBOPAG) [Suspect]
     Indication: THROMBOCYTOPENIA
     Dosage: 25 MG, QD, PO, 50 MG, QD, PO
     Route: 048
     Dates: start: 20090310, end: 20090329
  5. BLINDED ELTROMBOPAG       (ELTROMBOPAG) [Suspect]
     Indication: THROMBOCYTOPENIA
     Dosage: QD, PO, 100 MG, QD, PO
     Route: 048
     Dates: start: 20090330, end: 20090413
  6. BLINDED ELTROMBOPAG       (ELTROMBOPAG) [Suspect]
     Indication: THROMBOCYTOPENIA
     Dosage: QD, PO, 100 MG, QD, PO
     Route: 048
     Dates: start: 20090414, end: 20090805

REACTIONS (9)
  - ANAEMIA [None]
  - ASCITES [None]
  - BLOOD ALBUMIN DECREASED [None]
  - FATIGUE [None]
  - INSOMNIA [None]
  - JAUNDICE [None]
  - LIVER DISORDER [None]
  - OEDEMA PERIPHERAL [None]
  - PHLEBITIS [None]
